FAERS Safety Report 22378070 (Version 4)
Quarter: 2023Q2

REPORT INFORMATION
  Report Type: Spontaneous
  Country: US (occurrence: US)
  Receive Date: 20230529
  Receipt Date: 20230616
  Transmission Date: 20230721
  Serious: Yes (Hospitalization)
  Sender: FDA-Public Use
  Company Number: US-JNJFOC-20230551127

PATIENT
  Sex: Male

DRUGS (3)
  1. LISTERINE ANTISEPTIC MOUTHWASH [Suspect]
     Active Substance: EUCALYPTOL\MENTHOL\METHYL SALICYLATE\THYMOL
     Indication: Gingival pain
     Dosage: 3 TIMES A DAY FOR YEARS, THE AMOUNT RECOMMENDED BY THE PRODUCT ABOUT 3 TIMES A DAY, AFTER EVERY MEAL
     Route: 049
     Dates: start: 1980, end: 2022
  2. SODIUM FLUORIDE [Suspect]
     Active Substance: SODIUM FLUORIDE
     Indication: Product used for unknown indication
     Route: 065
  3. FINASTERIDE [Concomitant]
     Active Substance: FINASTERIDE
     Indication: Product used for unknown indication
     Dosage: PATIENT STARTED TAKING 1 OR HALF MG
     Route: 065
     Dates: start: 2019

REACTIONS (3)
  - Squamous cell carcinoma of the tongue [Recovered/Resolved]
  - Inappropriate schedule of product administration [Recovered/Resolved]
  - Lichen planus [Recovered/Resolved]

NARRATIVE: CASE EVENT DATE: 20110101
